FAERS Safety Report 6602360-X (Version None)
Quarter: 2010Q1

REPORT INFORMATION
  Report Type: 
  Country: None (occurrence: None)
  Receive Date: 20100225
  Receipt Date: 20100223
  Transmission Date: 20100710
  Serious: Yes (Hospitalization)
  Sender: FDA-Public Use
  Company Number: A0846361A

PATIENT
  Sex: Female

DRUGS (1)
  1. AVANDIA [Suspect]
     Indication: DIABETES MELLITUS
     Dosage: 8MG PER DAY
     Route: 048

REACTIONS (5)
  - BALANCE DISORDER [None]
  - BLINDNESS UNILATERAL [None]
  - CORONARY ARTERIAL STENT INSERTION [None]
  - PERFORMANCE STATUS DECREASED [None]
  - VISION BLURRED [None]
